FAERS Safety Report 5796532-4 (Version None)
Quarter: 2008Q2

REPORT INFORMATION
  Report Type: 
  Country: None (occurrence: None)
  Receive Date: 20080627
  Receipt Date: 20080618
  Transmission Date: 20081010
  Serious: Yes (Other)
  Sender: FDA-Public Use
  Company Number: 2008MB000077

PATIENT
  Age: 14 Year
  Sex: Female

DRUGS (2)
  1. CEPHALEXIN [Suspect]
     Indication: INFECTIOUS MONONUCLEOSIS
     Dosage: DISC. NOS
  2. IBUPROFEN [Suspect]
     Indication: INFECTIOUS MONONUCLEOSIS
     Dosage: DISCS. NOS

REACTIONS (18)
  - ABDOMINAL PAIN [None]
  - ALANINE AMINOTRANSFERASE INCREASED [None]
  - ALLODYNIA [None]
  - ANTIBODY TEST POSITIVE [None]
  - BLOOD AMYLASE INCREASED [None]
  - BRAIN STEM SYNDROME [None]
  - CONSTIPATION [None]
  - DEEP VEIN THROMBOSIS [None]
  - EPIGASTRIC DISCOMFORT [None]
  - EPSTEIN-BARR VIRUS ANTIBODY POSITIVE [None]
  - HYPERAESTHESIA [None]
  - INTERLEUKIN LEVEL INCREASED [None]
  - LIPASE INCREASED [None]
  - MUSCULAR WEAKNESS [None]
  - NEUROMYELITIS OPTICA [None]
  - PAIN IN EXTREMITY [None]
  - PETECHIAE [None]
  - URINARY RETENTION [None]
